FAERS Safety Report 7692117-3 (Version None)
Quarter: 2011Q3

REPORT INFORMATION
  Report Type: 
  Country: None (occurrence: None)
  Receive Date: 20110818
  Receipt Date: 20110810
  Transmission Date: 20111222
  Serious: Yes (Death, Hospitalization)
  Sender: FDA-Public Use
  Company Number: AR-BRISTOL-MYERS SQUIBB COMPANY-15020050

PATIENT
  Age: 62 Year
  Sex: Female
  Weight: 73 kg

DRUGS (3)
  1. CARBOPLATIN [Suspect]
     Indication: NON-SMALL CELL LUNG CANCER
     Dosage: WITHDRAWN ON 18FEB2010 DAY1 OF 21 DAY CYC 1 DF=AUC6
     Route: 042
     Dates: start: 20100218, end: 20100218
  2. PACLITAXEL [Suspect]
     Indication: NON-SMALL CELL LUNG CANCER
     Dosage: WITHDRAWN ON 18FEB2010 DAY1 OF 21 DAY CYC
     Route: 042
     Dates: start: 20100218, end: 20100218
  3. CETUXIMAB [Suspect]
     Indication: NON-SMALL CELL LUNG CANCER
     Dosage: WITHDRAWN ON 04MAR2010 STRENGTH: 5MG/ML
     Route: 042
     Dates: start: 20100218, end: 20100304

REACTIONS (2)
  - DYSPNOEA [None]
  - FATIGUE [None]
